FAERS Safety Report 14249596 (Version 2)
Quarter: 2018Q1

REPORT INFORMATION
  Report Type: Report from Study
  Country: FR (occurrence: FR)
  Receive Date: 20171205
  Receipt Date: 20180123
  Transmission Date: 20180508
  Serious: Yes (Death, Hospitalization)
  Sender: FDA-Public Use
  Company Number: FR-ROCHE-2031597

PATIENT
  Age: 74 Year
  Sex: Male

DRUGS (2)
  1. RITUXIMAB. [Suspect]
     Active Substance: RITUXIMAB
     Indication: IMMUNE THROMBOCYTOPENIC PURPURA
     Route: 065
     Dates: start: 20111214
  2. REVOLADE [Suspect]
     Active Substance: ELTROMBOPAG
     Indication: PRODUCT USED FOR UNKNOWN INDICATION
     Route: 065

REACTIONS (15)
  - Refractory anaemia with an excess of blasts [Unknown]
  - Deep vein thrombosis [Unknown]
  - Extremity necrosis [Recovered/Resolved with Sequelae]
  - Ulcer [Unknown]
  - Death [Fatal]
  - Ill-defined disorder [Unknown]
  - Drug-induced liver injury [Recovered/Resolved]
  - Pulmonary embolism [Unknown]
  - Peripheral arterial occlusive disease [Unknown]
  - Erysipelas [Unknown]
  - Osteoarthritis [Recovered/Resolved with Sequelae]
  - Osteitis [Recovered/Resolved with Sequelae]
  - Infection [Unknown]
  - Endarterectomy [Unknown]
  - Foot amputation [Recovered/Resolved with Sequelae]

NARRATIVE: CASE EVENT DATE: 201211
